FAERS Safety Report 20785110 (Version 1)
Quarter: 2022Q2

REPORT INFORMATION
  Report Type: Spontaneous
  Country: US (occurrence: None)
  Receive Date: 20220504
  Receipt Date: 20220504
  Transmission Date: 20220721
  Serious: Yes (Disabling)
  Sender: FDA-Public Use
  Company Number: None

PATIENT
  Age: 64 Year
  Sex: Male
  Weight: 87.75 kg

DRUGS (1)
  1. FASENRA [Suspect]
     Active Substance: BENRALIZUMAB
     Indication: Asthma
     Dates: start: 20171207, end: 20210727

REACTIONS (4)
  - Blood triglycerides increased [None]
  - Dizziness [None]
  - Lethargy [None]
  - Depression [None]

NARRATIVE: CASE EVENT DATE: 20220101
